FAERS Safety Report 8902656 (Version 2)
Quarter: 2012Q4

REPORT INFORMATION
  Report Type: 
  Country: US (occurrence: US)
  Receive Date: 20121112
  Receipt Date: 20121203
  Transmission Date: 20130627
  Serious: Yes (Disabling, Other)
  Sender: FDA-Public Use
  Company Number: US-PFIZER INC-2012266577

PATIENT
  Age: 77 Year
  Sex: Male
  Weight: 81.63 kg

DRUGS (12)
  1. CELEBREX [Suspect]
     Indication: PROSTATE CANCER
     Dosage: 200 mg, 2 capsules QD
     Route: 048
     Dates: start: 2003, end: 20121024
  2. LIPITOR [Suspect]
     Indication: HIGH CHOLESTEROL
     Dosage: UNK
     Dates: start: 2011, end: 2011
  3. CASODEX [Concomitant]
     Indication: PROSTATE CANCER
     Dosage: 50 mg 3 tablet daily
     Route: 048
     Dates: start: 20120530
  4. LISINOPRIL [Concomitant]
     Indication: PROPHYLAXIS
     Dosage: 5 mg, daily
     Route: 048
     Dates: start: 20090601
  5. ZOCOR [Concomitant]
     Indication: HIGH CHOLESTEROL
     Dosage: 40 mg
     Dates: start: 20100901
  6. ASPIRIN [Concomitant]
     Dosage: 81 mg, 1x/day
     Route: 048
     Dates: start: 20070212
  7. FEMARA [Concomitant]
     Dosage: 2.5 mg, every other day
     Route: 048
     Dates: start: 20120822
  8. VITAMIN D [Concomitant]
     Dosage: 4000 IU, 1x/day
     Route: 048
     Dates: start: 20070212
  9. CALCIUM CITRATE [Concomitant]
     Dosage: 1200 mg, 1x/day
     Route: 048
     Dates: start: 20100901
  10. ZOMETA [Concomitant]
     Dosage: 4mg/5ml, 2 mg concentrate, every three months
     Route: 042
     Dates: start: 20070212
  11. SYNTHROID [Concomitant]
     Dosage: 0.1 mg, 1x/day
     Route: 048
     Dates: start: 20061018
  12. AVODART [Concomitant]
     Dosage: 0.5 mg, 1x/day
     Route: 048
     Dates: start: 20100303

REACTIONS (4)
  - Off label use [Not Recovered/Not Resolved]
  - Sudden hearing loss [Not Recovered/Not Resolved]
  - Speech disorder [Unknown]
  - Drug ineffective [Unknown]
